FAERS Safety Report 8473493-0 (Version None)
Quarter: 2012Q2

REPORT INFORMATION
  Report Type: 
  Country: None (occurrence: None)
  Receive Date: 20120625
  Receipt Date: 20120625
  Transmission Date: 20120825
  Serious: Yes (Life-Threatening, Hospitalization)
  Sender: FDA-Public Use
  Company Number: None

PATIENT
  Sex: Female
  Weight: 63.5036 kg

DRUGS (7)
  1. BENZOYL PEROXIDE [Concomitant]
  2. IBUPROFEN [Concomitant]
  3. DOXYCHEL HYCLATE [Suspect]
     Indication: ACNE
     Dosage: 50MG DAILY PO
     Route: 048
     Dates: start: 20111101, end: 20120524
  4. TRETINOIN CREAM [Concomitant]
  5. CLINDAMYCIN LOTION [Concomitant]
  6. ASPIRIN [Concomitant]
  7. DOXYCYCLINE HCL [Suspect]
     Indication: ACNE
     Dosage: 100MG DAILY PO
     Route: 048
     Dates: start: 20120525, end: 20120617

REACTIONS (1)
  - SUICIDE ATTEMPT [None]
